FAERS Safety Report 21236947 (Version 2)
Quarter: 2022Q3

REPORT INFORMATION
  Report Type: Spontaneous
  Country: EG (occurrence: EG)
  Receive Date: 20220822
  Receipt Date: 20220901
  Transmission Date: 20221026
  Serious: Yes (Other)
  Sender: FDA-Public Use
  Company Number: EG-NOVOPROD-948913

PATIENT
  Age: 48 Year
  Sex: Female
  Weight: 104 kg

DRUGS (9)
  1. NOVORAPID [Suspect]
     Active Substance: INSULIN ASPART
     Dosage: 20 IU
     Route: 058
  2. NOVORAPID [Suspect]
     Active Substance: INSULIN ASPART
     Indication: Diabetes mellitus
     Dosage: 10-20U BEFORE BREAK FAST, 10-20U BEFORE LUNCH, 10-20UBEFORE DINNER
     Route: 058
  3. BENFOTIAMINE\CYANOCOBALAMIN\PYRIDOXINE HYDROCHLORIDE [Concomitant]
     Active Substance: BENFOTIAMINE\CYANOCOBALAMIN\PYRIDOXINE HYDROCHLORIDE
     Indication: Prophylaxis
     Dosage: 1 TAB EVERY DAY
     Route: 048
  4. TRULICITY [Concomitant]
     Active Substance: DULAGLUTIDE
     Indication: Diabetes mellitus
     Dosage: 1 PEN EVERY WEEK
     Route: 058
  5. TRULICITY [Concomitant]
     Active Substance: DULAGLUTIDE
     Indication: Obesity
  6. INSULIN HUMAN [Suspect]
     Active Substance: INSULIN HUMAN
     Indication: Diabetes mellitus
     Dosage: 140 IU, QD ( 70 IU BEFORE BREAKFAST, 40 IU BEFORE LLUNCH AND 30 IU BEFORE DINNER)
     Route: 058
  7. ACTRAPID [Suspect]
     Active Substance: INSULIN HUMAN
     Indication: Diabetes mellitus
     Dosage: 20 IU, TID (20 IU BEFORE BREAKFAST, 20 IU BEFORE LUNCH AND 20 IU BEFORE DINNER)
     Route: 058
  8. DEPOVIT B12 [Concomitant]
     Indication: Prophylaxis
     Dosage: EVERY WEEK , SOMETIMES DAY AFTER DAY
     Route: 030
  9. LANTUS [Concomitant]
     Active Substance: INSULIN GLARGINE
     Indication: Diabetes mellitus
     Dosage: 10 IU, QD
     Route: 058

REACTIONS (4)
  - Infected skin ulcer [Recovering/Resolving]
  - Neuropathic arthropathy [Not Recovered/Not Resolved]
  - Diabetic foot [Not Recovered/Not Resolved]
  - Hyperglycaemia [Not Recovered/Not Resolved]
